FAERS Safety Report 17597219 (Version 1)
Quarter: 2020Q1

REPORT INFORMATION
  Report Type: Spontaneous
  Country: FR (occurrence: FR)
  Receive Date: 20200330
  Receipt Date: 20200330
  Transmission Date: 20200409
  Serious: Yes (Hospitalization)
  Sender: FDA-Public Use
  Company Number: FR-TEVA-2020-FR-1214150

PATIENT
  Age: 55 Year
  Sex: Male
  Weight: 83 kg

DRUGS (3)
  1. CLOZAPINE. [Suspect]
     Active Substance: CLOZAPINE
     Indication: SCHIZOPHRENIA
     Dosage: 150 MG
     Route: 048
     Dates: start: 20191105, end: 20200124
  2. SALBUTAMOL ARROW [Suspect]
     Active Substance: ALBUTEROL
     Dosage: 3 DOSAGE FORMS
     Route: 055
     Dates: start: 20200113, end: 20200121
  3. ARIPIPRAZOLE EG 15 MG, COMPRIME [Suspect]
     Active Substance: ARIPIPRAZOLE
     Indication: SCHIZOPHRENIA
     Dosage: 1 DOSAGE FORMS
     Route: 048
     Dates: end: 20200124

REACTIONS (4)
  - Enuresis [Recovered/Resolved]
  - Dysarthria [Recovered/Resolved]
  - Dysphemia [Recovered/Resolved]
  - Tremor [Recovered/Resolved]

NARRATIVE: CASE EVENT DATE: 20200113
